FAERS Safety Report 21940085 (Version 1)
Quarter: 2023Q1

REPORT INFORMATION
  Report Type: Spontaneous
  Country: JP (occurrence: JP)
  Receive Date: 20230201
  Receipt Date: 20230201
  Transmission Date: 20230417
  Serious: Yes (Death, Hospitalization, Other)
  Sender: FDA-Public Use
  Company Number: JP-BAXTER-2023BAX010297

PATIENT
  Age: 9 Decade
  Sex: Male

DRUGS (2)
  1. EXTRANEAL [Suspect]
     Active Substance: CALCIUM CHLORIDE\ICODEXTRIN\MAGNESIUM CHLORIDE\SODIUM CHLORIDE\SODIUM LACTATE
     Indication: Glomerulonephritis chronic
     Dosage: UNK
     Route: 033
     Dates: start: 20190516, end: 20230103
  2. REGUNEAL HCA [Suspect]
     Active Substance: CALCIUM CHLORIDE\DEXTROSE MONOHYDRATE\HYDROCHLORIC ACID\MAGNESIUM CHLORIDE\SODIUM BICARBONATE\SODIUM
     Indication: Glomerulonephritis chronic
     Dosage: UNK
     Route: 033
     Dates: start: 20190516, end: 20230103

REACTIONS (4)
  - Marasmus [Fatal]
  - Cognitive disorder [Unknown]
  - Loss of personal independence in daily activities [Unknown]
  - Peritoneal dialysis complication [Unknown]
